FAERS Safety Report 6450894-3 (Version None)
Quarter: 2009Q4

REPORT INFORMATION
  Report Type: 
  Country: None (occurrence: None)
  Receive Date: 20091123
  Receipt Date: 20091110
  Transmission Date: 20100525
  Serious: Yes (Other)
  Sender: FDA-Public Use
  Company Number: JP-PFIZER INC-2009289163

PATIENT
  Age: 72 Year
  Sex: Female

DRUGS (5)
  1. CELECOX [Suspect]
     Dosage: 200MG/DAY
     Route: 048
  2. OLMESARTAN MEDOXOMIL [Suspect]
     Dosage: UNK
     Route: 048
  3. CONIEL [Suspect]
     Dosage: UNK
     Route: 048
  4. ALDOMET [Suspect]
     Dosage: UNK
     Route: 048
  5. MUCOSTA [Suspect]
     Dosage: UNK
     Route: 048

REACTIONS (1)
  - INTERSTITIAL LUNG DISEASE [None]
